FAERS Safety Report 4973902-5 (Version None)
Quarter: 2006Q2

REPORT INFORMATION
  Report Type: 
  Country: None (occurrence: None)
  Receive Date: 20060417
  Receipt Date: 20060406
  Transmission Date: 20061013
  Serious: Yes (Life-Threatening, Hospitalization, Disabling)
  Sender: FDA-Public Use
  Company Number: GB-AVENTIS-200612133EU

PATIENT
  Age: 67 Year
  Sex: Female

DRUGS (15)
  1. LOVENOX [Suspect]
     Indication: ANGINA PECTORIS
     Dosage: DOSE: UNKNOWN DOSE
     Dates: start: 20040703, end: 20040703
  2. LOVENOX [Suspect]
     Dates: start: 20040704, end: 20040714
  3. ASPIRIN [Suspect]
     Indication: ANGINA PECTORIS
     Dosage: DOSE: UNKNOWN DOSE
     Dates: start: 20040703, end: 20040714
  4. PLAVIX [Suspect]
     Indication: ACUTE MYOCARDIAL INFARCTION
     Route: 048
     Dates: end: 20040714
  5. FRUSEMIDE [Concomitant]
     Indication: DRUG USE FOR UNKNOWN INDICATION
     Dosage: DOSE: UNKNOWN DOSE
  6. RAMIPRIL [Concomitant]
     Indication: DRUG USE FOR UNKNOWN INDICATION
     Dosage: DOSE: UNKNOWN DOSE
  7. OMEPRAZOLE [Concomitant]
     Indication: DRUG USE FOR UNKNOWN INDICATION
     Dosage: DOSE: UNKNOWN DOSE
  8. DOMPERIDONE [Concomitant]
     Indication: DRUG USE FOR UNKNOWN INDICATION
     Dosage: DOSE: UNKNOWN DOSE
  9. GLYCERYL TRINITRATE [Concomitant]
     Indication: ANGINA PECTORIS
     Dosage: DOSE: UNKNOWN DOSE
     Dates: start: 20040703
  10. METOPROLOL [Concomitant]
     Indication: ACUTE MYOCARDIAL INFARCTION
     Dates: start: 20040704
  11. RITUXIMAB [Concomitant]
     Indication: NON-HODGKIN'S LYMPHOMA
     Dosage: DOSE: UNKNOWN DOSE
     Dates: start: 20040629
  12. CYCLOPHOSPHAMIDE [Concomitant]
     Indication: NON-HODGKIN'S LYMPHOMA
     Dosage: DOSE: UNKNOWN DOSE
     Dates: start: 20040629
  13. ADRIAMYCIN PFS [Concomitant]
     Indication: NON-HODGKIN'S LYMPHOMA
     Dosage: DOSE: UNKNOWN DOSE
     Dates: start: 20040629
  14. VINCRISTINE [Concomitant]
     Indication: NON-HODGKIN'S LYMPHOMA
     Dosage: DOSE: UNKNOWN DOSE
     Dates: start: 20040629
  15. PREDNISOLONE [Concomitant]
     Indication: NON-HODGKIN'S LYMPHOMA
     Dosage: DOSE: UNKNOWN DOSE

REACTIONS (6)
  - BACK PAIN [None]
  - MYOCARDIAL INFARCTION [None]
  - PAIN [None]
  - PAIN IN EXTREMITY [None]
  - PARAPLEGIA [None]
  - SPINAL CORD HAEMORRHAGE [None]
